FAERS Safety Report 17368549 (Version 1)
Quarter: 2020Q1

REPORT INFORMATION
  Report Type: Spontaneous
  Country: US (occurrence: US)
  Receive Date: 20200120
  Receipt Date: 20200120
  Transmission Date: 20200409
  Serious: No
  Sender: FDA-Public Use
  Company Number: None

PATIENT
  Age: 62 Year
  Sex: Female

DRUGS (2)
  1. IBRANCE [Suspect]
     Active Substance: PALBOCICLIB
     Dosage: ?          OTHER
     Route: 048
     Dates: start: 201708
  2. LETROZOLE. [Concomitant]
     Active Substance: LETROZOLE
     Dates: start: 20170804

REACTIONS (3)
  - Product use complaint [None]
  - Therapy cessation [None]
  - Choking [None]

NARRATIVE: CASE EVENT DATE: 20200120
